FAERS Safety Report 7126530-X (Version None)
Quarter: 2010Q4

REPORT INFORMATION
  Report Type: 
  Country: None (occurrence: None)
  Receive Date: 20101129
  Receipt Date: 20101122
  Transmission Date: 20110411
  Serious: Yes (Other)
  Sender: FDA-Public Use
  Company Number: SE-PFIZER INC-2010133715

PATIENT
  Sex: Female

DRUGS (2)
  1. ZOLOFT [Suspect]
     Dosage: 125 MG, UNK
     Route: 048
     Dates: start: 20030101
  2. OXYNORM [Interacting]
     Indication: PROCEDURAL PAIN
     Dosage: UNK
     Dates: start: 20100201

REACTIONS (4)
  - ANXIETY [None]
  - DRUG INTERACTION [None]
  - PROCEDURAL PAIN [None]
  - SURGERY [None]
